FAERS Safety Report 12291229 (Version 3)
Quarter: 2017Q3

REPORT INFORMATION
  Report Type: Spontaneous
  Country: JP (occurrence: JP)
  Receive Date: 20160421
  Receipt Date: 20170824
  Transmission Date: 20171127
  Serious: Yes (Life-Threatening, Hospitalization, Other)
  Sender: FDA-Public Use
  Company Number: JP-PFIZER INC-2016224003

PATIENT
  Age: 67 Year
  Sex: Male
  Weight: 54 kg

DRUGS (4)
  1. MORPHINE [Suspect]
     Active Substance: MORPHINE
     Dosage: 5 MG, UNK
     Route: 030
  2. RANITIDINE. [Suspect]
     Active Substance: RANITIDINE
     Dosage: 50 MG, UNK
     Route: 041
  3. ULINASTATINE [Suspect]
     Active Substance: ULINASTATIN
     Dosage: 300000 IU, UNK
     Route: 041
  4. METHYLPREDNISOLONE SODIUM SUCCINATE. [Suspect]
     Active Substance: METHYLPREDNISOLONE SODIUM SUCCINATE
     Dosage: 2 G, UNK
     Route: 041

REACTIONS (1)
  - Anaphylactic shock [Recovered/Resolved]
